FAERS Safety Report 9395823 (Version 1)
Quarter: 2013Q3

REPORT INFORMATION
  Report Type: Spontaneous
  Country: JP (occurrence: JP)
  Receive Date: 20130711
  Receipt Date: 20130711
  Transmission Date: 20140515
  Serious: Yes (Hospitalization, Other)
  Sender: FDA-Public Use
  Company Number: JP-WATSON-2013-11775

PATIENT
  Age: 75 Year
  Sex: Female

DRUGS (3)
  1. MAGNESIUM [Suspect]
     Indication: CONSTIPATION
     Dosage: 2 G, DAILY
     Route: 065
  2. FUROSEMIDE (UNKNOWN) [Suspect]
     Dosage: 20 MG, DAILY
     Route: 065
  3. LOXOPROFEN SODIUM [Suspect]
     Indication: PELVIC PAIN
     Dosage: 180 MG, DAILY
     Route: 065

REACTIONS (6)
  - Atrioventricular block [Unknown]
  - Coma [Recovered/Resolved]
  - Renal failure acute [Recovering/Resolving]
  - Respiratory acidosis [Recovered/Resolved]
  - Hypermagnesaemia [Unknown]
  - Hypotension [Recovered/Resolved]
